FAERS Safety Report 8615240 (Version 2)
Quarter: 2012Q4

REPORT INFORMATION
  Report Type: 
  Country: US (occurrence: US)
  Receive Date: 20120614
  Receipt Date: 20120921
  Transmission Date: 20130627
  Serious: Yes (Death, Hospitalization)
  Sender: FDA-Public Use
  Company Number: US-ELI_LILLY_AND_COMPANY-US201206004460

PATIENT
  Age: 55 Year
  Sex: Female
  Weight: 63.49 kg

DRUGS (2)
  1. GEMZAR [Suspect]
     Indication: NON-SMALL CELL LUNG CANCER METASTATIC
     Dosage: 1360 mg weekly for 3 weeks
     Route: 042
     Dates: start: 20110422, end: 20110624
  2. ZOMETA [Concomitant]

REACTIONS (2)
  - Neoplasm progression [Fatal]
  - Pleural effusion [Unknown]
